FAERS Safety Report 4367640-X (Version None)
Quarter: 2004Q2

REPORT INFORMATION
  Report Type: 
  Country: None (occurrence: None)
  Receive Date: 20040526
  Receipt Date: 20040206
  Transmission Date: 20050107
  Serious: No
  Sender: FDA-Public Use
  Company Number: 2004US002028

PATIENT
  Age: 62 Year
  Sex: Female
  Weight: 81.9 kg

DRUGS (8)
  1. ALOXI [Suspect]
     Indication: PROPHYLAXIS OF NAUSEA AND VOMITING
     Dosage: 25 MG, SINGLE, INTRAVENOUS
     Route: 042
     Dates: start: 20040128, end: 20040128
  2. NEURONTIN [Concomitant]
  3. XANAX [Concomitant]
  4. MS CONTIN [Concomitant]
  5. SENOKOT-S (SENNA, DOCUSATE SODIUM) [Concomitant]
  6. POTASSIUM CHLORIDE [Concomitant]
  7. HYDROCHLOROTHIAZIDE [Concomitant]
  8. NORCO [Concomitant]

REACTIONS (3)
  - ERYTHEMA [None]
  - FLUSHING [None]
  - PRURITUS [None]
